FAERS Safety Report 16533817 (Version 1)
Quarter: 2019Q3

REPORT INFORMATION
  Report Type: Report from Study
  Country: NO (occurrence: NO)
  Receive Date: 20190705
  Receipt Date: 20190705
  Transmission Date: 20191004
  Serious: Yes (Death)
  Sender: FDA-Public Use
  Company Number: NO-JNJFOC-20190629845

PATIENT
  Age: 42 Year
  Sex: Male

DRUGS (3)
  1. CYCLOPHOSPHAMIDE. [Suspect]
     Active Substance: CYCLOPHOSPHAMIDE
     Indication: TESTICULAR GERM CELL TUMOUR
     Dosage: DAY 2, CUMULATIVE DOSE 11100 MG,REPEATED AT 3-WEEK INTERVALS
     Route: 065
  2. DOXORUBICIN HYDROCHLORIDE. [Suspect]
     Active Substance: DOXORUBICIN HYDROCHLORIDE
     Indication: TESTICULAR GERM CELL TUMOUR
     Dosage: DAY 2, CUMULATIVE DOSE 840 MG REPEATED AT 3-WEEK INTERVALS
     Route: 065
  3. CISPLATIN. [Suspect]
     Active Substance: CISPLATIN
     Indication: TESTICULAR GERM CELL TUMOUR
     Dosage: CUMULATIVE DOSE 2020 MG
     Route: 065

REACTIONS (7)
  - Product use in unapproved indication [Unknown]
  - Peptic ulcer [Fatal]
  - Renal artery stenosis [Fatal]
  - Off label use [Unknown]
  - Cardiac failure [Fatal]
  - Iliac artery occlusion [Fatal]
  - Ileus [Fatal]
